APPROVED DRUG PRODUCT: DYAZIDE
Active Ingredient: HYDROCHLOROTHIAZIDE; TRIAMTERENE
Strength: 25MG;50MG **Federal Register determination that product was not discontinued or withdrawn for safety or effectiveness reasons**
Dosage Form/Route: CAPSULE;ORAL
Application: N016042 | Product #002
Applicant: GLAXOSMITHKLINE LLC
Approved: Approved Prior to Jan 1, 1982 | RLD: No | RS: No | Type: DISCN